FAERS Safety Report 23788286 (Version 1)
Quarter: 2024Q2

REPORT INFORMATION
  Report Type: Spontaneous
  Country: US (occurrence: None)
  Receive Date: 20240425
  Receipt Date: 20240425
  Transmission Date: 20240715
  Serious: Yes (Hospitalization)
  Sender: FDA-Public Use
  Company Number: None

PATIENT
  Age: 66 Year
  Sex: Male

DRUGS (11)
  1. REPATHA [Suspect]
     Active Substance: EVOLOCUMAB
     Indication: Hyperlipidaemia
     Dosage: 140 MG EVERY 2 WEEKS SUBCUTANEOUS?
     Route: 058
     Dates: start: 20240208
  2. BRILINTA [Concomitant]
     Active Substance: TICAGRELOR
  3. SPIRONOLACTONE [Concomitant]
     Active Substance: SPIRONOLACTONE
  4. LOSARTAN [Concomitant]
     Active Substance: LOSARTAN
  5. MEMANTINE [Concomitant]
     Active Substance: MEMANTINE
  6. CARVEDILOL [Concomitant]
     Active Substance: CARVEDILOL
  7. ISOSORBIDE MONOTRITATE [Concomitant]
  8. OXCARBAZEPINE [Concomitant]
     Active Substance: OXCARBAZEPINE
  9. ROSUVASTATIN [Concomitant]
     Active Substance: ROSUVASTATIN
  10. VENTLAFAXINE [Concomitant]
  11. ACETAZOLAMIDE [Concomitant]
     Active Substance: ACETAZOLAMIDE

REACTIONS (3)
  - Mouth swelling [None]
  - Lip swelling [None]
  - Pharyngeal swelling [None]

NARRATIVE: CASE EVENT DATE: 20240415
